FAERS Safety Report 8195599-6 (Version None)
Quarter: 2012Q1

REPORT INFORMATION
  Report Type: 
  Country: None (occurrence: None)
  Receive Date: 20120308
  Receipt Date: 20120222
  Transmission Date: 20120608
  Serious: Yes (Other)
  Sender: FDA-Public Use
  Company Number: CHPA2012US003171

PATIENT
  Age: 35 Year
  Sex: Female

DRUGS (1)
  1. EXCEDRIN (MIGRAINE) [Suspect]
     Indication: HEADACHE
     Dosage: 2 DF, QD
     Route: 048
     Dates: end: 20120127

REACTIONS (7)
  - DYSPNOEA [None]
  - SELF-MEDICATION [None]
  - DIZZINESS [None]
  - DYSKINESIA [None]
  - SEIZURE LIKE PHENOMENA [None]
  - HEART RATE INCREASED [None]
  - NERVOUSNESS [None]
